FAERS Safety Report 14861285 (Version 2)
Quarter: 2018Q4

REPORT INFORMATION
  Report Type: Spontaneous
  Country: GB (occurrence: GB)
  Receive Date: 20180508
  Receipt Date: 20181126
  Transmission Date: 20190204
  Serious: Yes (Other)
  Sender: FDA-Public Use
  Company Number: GB-SA-2018SA117864

PATIENT

DRUGS (12)
  1. PROPOFOL. [Suspect]
     Active Substance: PROPOFOL
     Dosage: 25 MG, UNK
     Route: 064
  2. LIDOCAINE HYDROCHLORIDE. [Suspect]
     Active Substance: LIDOCAINE HYDROCHLORIDE
     Dosage: UNK UNK,UNK
     Route: 064
  3. REMIFENTANIL HYDROCHLORIDE. [Suspect]
     Active Substance: REMIFENTANIL HYDROCHLORIDE
     Route: 064
  4. HYDRALAZINE [Suspect]
     Active Substance: HYDRALAZINE HYDROCHLORIDE
     Dosage: 50 MG, TID
     Route: 064
  5. ALFENTANIL. [Suspect]
     Active Substance: ALFENTANIL
     Dosage: 2 MG, UNK
     Route: 064
  6. GLYCERYL TRINITRATE [Suspect]
     Active Substance: NITROGLYCERIN
     Dosage: 20 DF ML/HR
     Route: 064
  7. MAGNESIUM SULFATE. [Suspect]
     Active Substance: MAGNESIUM SULFATE
     Dosage: UNK UNK,UNK
     Route: 064
  8. ROCURONIUM [Suspect]
     Active Substance: ROCURONIUM BROMIDE
     Dosage: 60 MG, UNK
     Route: 064
  9. LABETALOL [Suspect]
     Active Substance: LABETALOL\LABETALOL HYDROCHLORIDE
     Dosage: 400 MG, TID
     Route: 064
  10. AMLODIPINE [Suspect]
     Active Substance: AMLODIPINE BESYLATE
     Dosage: 10 MG, QD
     Route: 064
  11. METHYLDOPA. [Suspect]
     Active Substance: METHYLDOPA
     Dosage: 750 MG, TID
     Route: 064
  12. SEVOFLURANE. [Suspect]
     Active Substance: SEVOFLURANE
     Dosage: UNK UNK,UNK
     Route: 064

REACTIONS (2)
  - Premature baby [Unknown]
  - Foetal exposure during pregnancy [Unknown]
